FAERS Safety Report 8772596 (Version 2)
Quarter: 2012Q4

REPORT INFORMATION
  Report Type: 
  Country: BR (occurrence: BR)
  Receive Date: 20120905
  Receipt Date: 20120910
  Transmission Date: 20130627
  Serious: Yes (Death)
  Sender: FDA-Public Use
  Company Number: BR-SANOFI-AVENTIS-2012SA063210

PATIENT
  Sex: Female

DRUGS (1)
  1. LASIX [Suspect]
     Indication: DRUG EXPOSURE IN UTERO
     Route: 064

REACTIONS (6)
  - Foetal death [Fatal]
  - Foetal exposure during pregnancy [Fatal]
  - Intra-abdominal haemorrhage [Fatal]
  - Thoracic haemorrhage [Fatal]
  - Renal haemorrhage [Fatal]
  - Splenic necrosis [Fatal]
